FAERS Safety Report 4982910-X (Version None)
Quarter: 2006Q2

REPORT INFORMATION
  Report Type: 
  Country: None (occurrence: None)
  Receive Date: 20060420
  Receipt Date: 20060411
  Transmission Date: 20061013
  Serious: Yes (Hospitalization)
  Sender: FDA-Public Use
  Company Number: 2006BI005414

PATIENT
  Age: 48 Year
  Sex: Female
  Weight: 93.441 kg

DRUGS (8)
  1. AVONEX [Suspect]
     Indication: MULTIPLE SCLEROSIS
     Dosage: 7.5 UG; QW; IM; SEE IMAGE
     Route: 030
     Dates: start: 20020201, end: 20020201
  2. AVONEX [Suspect]
     Indication: MULTIPLE SCLEROSIS
     Dosage: 7.5 UG; QW; IM; SEE IMAGE
     Route: 030
     Dates: start: 20020201, end: 20020301
  3. AVONEX [Suspect]
     Indication: MULTIPLE SCLEROSIS
     Dosage: 7.5 UG; QW; IM; SEE IMAGE
     Route: 030
     Dates: start: 20020301, end: 20030801
  4. PRILOSEC [Concomitant]
  5. PROZAC [Concomitant]
  6. ULTRAM [Concomitant]
  7. NEURONTIN [Concomitant]
  8. IBUPROFEN [Concomitant]

REACTIONS (3)
  - CONDITION AGGRAVATED [None]
  - MUSCLE SPASTICITY [None]
  - UTERINE LEIOMYOMA [None]
